FAERS Safety Report 4586503-8 (Version None)
Quarter: 2005Q1

REPORT INFORMATION
  Report Type: 
  Country: None (occurrence: None)
  Receive Date: 20050214
  Receipt Date: 20050127
  Transmission Date: 20050727
  Serious: Yes (Death, Hospitalization)
  Sender: FDA-Public Use
  Company Number: DSA_25707_2005

PATIENT
  Age: 56 Year
  Sex: Male

DRUGS (4)
  1. ENALAPRIL MALEATE [Suspect]
     Indication: HYPERTENSION
     Dosage: 20 MG QD PO
     Route: 048
     Dates: start: 19970822, end: 20030125
  2. METOPROLOL-BC [Concomitant]
  3. SELO-ZOK [Concomitant]
  4. ADALAT OROS [Concomitant]

REACTIONS (9)
  - ANAPHYLACTIC SHOCK [None]
  - ANGIONEUROTIC OEDEMA [None]
  - BRAIN DEATH [None]
  - BRAIN OEDEMA [None]
  - ELECTROCARDIOGRAM ST SEGMENT DEPRESSION [None]
  - MUSCLE SPASMS [None]
  - PNEUMONIA BACTERIAL [None]
  - QRS AXIS ABNORMAL [None]
  - RESPIRATORY ARREST [None]
